FAERS Safety Report 6805350-7 (Version None)
Quarter: 2010Q2

REPORT INFORMATION
  Report Type: 
  Country: None (occurrence: None)
  Receive Date: 20100628
  Receipt Date: 20071026
  Transmission Date: 20101027
  Serious: No
  Sender: FDA-Public Use
  Company Number: US-PFIZER INC-2007090574

PATIENT
  Sex: Female
  Weight: 77 kg

DRUGS (1)
  1. GENOTROPIN [Suspect]
     Indication: HYPOPITUITARISM
     Route: 058
     Dates: start: 20050101

REACTIONS (2)
  - WEIGHT DECREASED [None]
  - WEIGHT INCREASED [None]
